FAERS Safety Report 16792210 (Version 1)
Quarter: 2019Q3

REPORT INFORMATION
  Report Type: Spontaneous
  Country: US (occurrence: US)
  Receive Date: 20190910
  Receipt Date: 20190910
  Transmission Date: 20191005
  Serious: No
  Sender: FDA-Public Use
  Company Number: US-ROCHE-2256412

PATIENT
  Age: 50 Year
  Sex: Male

DRUGS (4)
  1. GANCICLOVIR SODIUM. [Suspect]
     Active Substance: GANCICLOVIR SODIUM
     Indication: CYTOMEGALOVIRUS CHORIORETINITIS
     Route: 031
  2. VALGANCICLOVIR. [Concomitant]
     Active Substance: VALGANCICLOVIR
     Indication: ANTIVIRAL PROPHYLAXIS
     Route: 065
  3. FOSCARNET [Concomitant]
     Active Substance: FOSCARNET
  4. MARIBAVIR [Concomitant]
     Active Substance: MARIBAVIR

REACTIONS (3)
  - Drug resistance [Unknown]
  - Off label use [Unknown]
  - Intentional product use issue [Unknown]
